FAERS Safety Report 10071746 (Version 1)
Quarter: 2014Q2

REPORT INFORMATION
  Report Type: Spontaneous
  Country: US (occurrence: US)
  Receive Date: 20140411
  Receipt Date: 20140411
  Transmission Date: 20141212
  Serious: Yes (Other)
  Sender: FDA-Public Use
  Company Number: US-JNJFOC-20140404756

PATIENT
  Sex: Female
  Weight: 56.7 kg

DRUGS (8)
  1. XARELTO [Suspect]
     Indication: THROMBOSIS
     Route: 048
     Dates: start: 201403
  2. XARELTO [Suspect]
     Indication: THROMBOSIS
     Route: 048
     Dates: start: 2014, end: 201403
  3. XARELTO [Suspect]
     Indication: THROMBOSIS
     Route: 048
     Dates: start: 20140220, end: 2014
  4. XARELTO [Suspect]
     Indication: THROMBOSIS PROPHYLAXIS
     Route: 048
     Dates: start: 201403
  5. XARELTO [Suspect]
     Indication: THROMBOSIS PROPHYLAXIS
     Route: 048
     Dates: start: 2014, end: 201403
  6. XARELTO [Suspect]
     Indication: THROMBOSIS PROPHYLAXIS
     Route: 048
     Dates: start: 20140220, end: 2014
  7. OXYCODONE [Concomitant]
     Indication: SLEEP DISORDER
     Route: 048
     Dates: start: 201402
  8. OXYCODONE [Concomitant]
     Indication: PAIN
     Route: 048
     Dates: start: 201402

REACTIONS (2)
  - Thrombosis [Unknown]
  - Pain in extremity [Unknown]
